FAERS Safety Report 7365066-8 (Version None)
Quarter: 2011Q1

REPORT INFORMATION
  Report Type: 
  Country: None (occurrence: None)
  Receive Date: 20110321
  Receipt Date: 20110307
  Transmission Date: 20110831
  Serious: Yes (Hospitalization)
  Sender: FDA-Public Use
  Company Number: JP-WATSON-2011-03435

PATIENT
  Age: 71 Year
  Sex: Male

DRUGS (6)
  1. OXALIPLATIN [Suspect]
     Indication: METASTASES TO LUNG
     Dosage: UNK
     Route: 042
  2. LEUCOVORIN                         /00566701/ [Suspect]
     Indication: RECTAL CANCER
  3. FLUOROURACIL [Suspect]
     Indication: RECTAL CANCER
  4. OXALIPLATIN [Suspect]
     Indication: RECTAL CANCER
  5. FLUOROURACIL [Suspect]
     Indication: METASTASES TO LUNG
     Dosage: UNK
     Route: 042
  6. LEUCOVORIN                         /00566701/ [Suspect]
     Indication: METASTASES TO LUNG
     Dosage: UNK

REACTIONS (2)
  - INTERSTITIAL LUNG DISEASE [None]
  - RESPIRATORY FAILURE [None]
